FAERS Safety Report 6590240-8 (Version None)
Quarter: 2010Q1

REPORT INFORMATION
  Report Type: 
  Country: None (occurrence: None)
  Receive Date: 20100219
  Receipt Date: 20100215
  Transmission Date: 20100710
  Serious: Yes (Hospitalization)
  Sender: FDA-Public Use
  Company Number: JP-BAYER-201010734BYL

PATIENT
  Age: 56 Year
  Sex: Male
  Weight: 54 kg

DRUGS (7)
  1. NEXAVAR [Suspect]
     Indication: RENAL CELL CARCINOMA
     Dosage: UNIT DOSE: 200 MG
     Route: 048
     Dates: start: 20090914, end: 20091027
  2. SUMIFERON [Concomitant]
     Route: 065
     Dates: start: 20090817, end: 20090928
  3. SUMIFERON [Concomitant]
     Route: 065
     Dates: start: 20091014
  4. TAKEPRON [Concomitant]
     Route: 048
     Dates: start: 20090914
  5. MAGMITT [Concomitant]
     Route: 048
     Dates: start: 20090914
  6. BERIZYM [Concomitant]
     Route: 048
     Dates: start: 20090914
  7. HYPEN [Concomitant]
     Indication: PROPHYLAXIS
     Route: 048
     Dates: start: 20090914

REACTIONS (3)
  - BLOOD AMYLASE INCREASED [None]
  - HEPATIC FUNCTION ABNORMAL [None]
  - RASH [None]
